FAERS Safety Report 22121222 (Version 1)
Quarter: 2023Q1

REPORT INFORMATION
  Report Type: Report from Study
  Country: US (occurrence: None)
  Receive Date: 20230321
  Receipt Date: 20230321
  Transmission Date: 20230417
  Serious: Yes (Death, Other)
  Sender: FDA-Public Use
  Company Number: US-ROCHE-3313296

PATIENT

DRUGS (1)
  1. TOCILIZUMAB [Suspect]
     Active Substance: TOCILIZUMAB
     Indication: Malignant melanoma
     Dosage: ON 15/JUN/2021, RECEIVED THE LAST DOSE OF TOCILIZUMAB.
     Route: 042
     Dates: start: 20210525, end: 20210615

REACTIONS (2)
  - Cellulitis [Unknown]
  - Death [Fatal]
